FAERS Safety Report 5261487-8 (Version None)
Quarter: 2007Q1

REPORT INFORMATION
  Report Type: 
  Country: None (occurrence: None)
  Receive Date: 20070307
  Receipt Date: 20070228
  Transmission Date: 20070707
  Serious: Yes (Death, Life-Threatening, Other)
  Sender: FDA-Public Use
  Company Number: 2006SP008500

PATIENT
  Age: 6 Year
  Sex: Male
  Weight: 16 kg

DRUGS (11)
  1. TEMODAL [Suspect]
     Indication: BRAIN NEOPLASM
     Dosage: 75 MG/M2;QD;PO
     Route: 048
     Dates: start: 20060920, end: 20061023
  2. VEPESID [Suspect]
     Indication: DRUG USE FOR UNKNOWN INDICATION
     Dates: start: 20061007, end: 20061026
  3. BAKTAR (CON.) [Concomitant]
  4. LASTET S (CON.) [Concomitant]
  5. NASEA-OD (CON.) [Concomitant]
  6. PRIMPERAN (CON.) [Concomitant]
  7. DECADRON (CON.) [Concomitant]
  8. MANNITOL (CON.) [Concomitant]
  9. LEPETAN (CON.) [Concomitant]
  10. PRODIF (CON.) [Concomitant]
  11. GAMMAGARD (CON.) [Concomitant]

REACTIONS (8)
  - BLOOD UREA INCREASED [None]
  - BRAIN NEOPLASM [None]
  - DISEASE PROGRESSION [None]
  - HYPERNATRAEMIA [None]
  - PLATELET COUNT DECREASED [None]
  - PNEUMONIA BACTERIAL [None]
  - TUMOUR NECROSIS [None]
  - WHITE BLOOD CELL COUNT DECREASED [None]
